FAERS Safety Report 12542196 (Version 1)
Quarter: 2016Q3

REPORT INFORMATION
  Report Type: Spontaneous
  Country: US (occurrence: US)
  Receive Date: 20160708
  Receipt Date: 20160708
  Transmission Date: 20161109
  Serious: Yes (Hospitalization, Disabling, Other)
  Sender: FDA-Public Use
  Company Number: US-PFIZER INC-2016332102

PATIENT
  Age: 72 Year
  Sex: Female
  Weight: 48.73 kg

DRUGS (1)
  1. BUPIVACAINE HCL [Suspect]
     Active Substance: BUPIVACAINE HYDROCHLORIDE
     Indication: BURSITIS
     Dosage: UNK
     Dates: start: 201406, end: 201406

REACTIONS (3)
  - Motor dysfunction [Unknown]
  - Neurotoxicity [Unknown]
  - Product use issue [Unknown]

NARRATIVE: CASE EVENT DATE: 201406
